FAERS Safety Report 8069280-8 (Version None)
Quarter: 2011Q4

REPORT INFORMATION
  Report Type: 
  Country: None (occurrence: None)
  Receive Date: 20111221
  Receipt Date: 20111025
  Transmission Date: 20120403
  Serious: Yes (Other)
  Sender: FDA-Public Use
  Company Number: PHEH2011US07965

PATIENT
  Age: 85 Year
  Sex: Male

DRUGS (6)
  1. METOPROLOL TARTRATE [Concomitant]
  2. LOVASTATIN [Concomitant]
  3. NIFEDIPINE [Concomitant]
  4. EXJADE [Suspect]
     Indication: IRON OVERLOAD
     Dosage: 1500 MG, DAILY, ORAL
     Route: 048
     Dates: start: 20080801, end: 20110501
  5. ASPIRIN [Concomitant]
  6. DIOVAN [Concomitant]

REACTIONS (2)
  - SERUM FERRITIN INCREASED [None]
  - HYPOACUSIS [None]
